FAERS Safety Report 10646554 (Version 1)
Quarter: 2014Q4

REPORT INFORMATION
  Report Type: Spontaneous
  Country: US (occurrence: US)
  Receive Date: 20141211
  Receipt Date: 20141211
  Transmission Date: 20150529
  Serious: No
  Sender: FDA-Public Use
  Company Number: US-009507513-1411USA010379

PATIENT
  Sex: Female

DRUGS (1)
  1. GRASTEK [Suspect]
     Active Substance: PHLEUM PRATENSE POLLEN
     Indication: IMMUNISATION
     Dosage: 2800 BAU, UNK
     Route: 060

REACTIONS (1)
  - Tongue oedema [Recovered/Resolved]
